FAERS Safety Report 25499318 (Version 1)
Quarter: 2025Q3

REPORT INFORMATION
  Report Type: Spontaneous
  Country: EU (occurrence: EU)
  Receive Date: 20250701
  Receipt Date: 20250701
  Transmission Date: 20251021
  Serious: Yes (Life-Threatening)
  Sender: SANDOZ
  Company Number: EU-Clinigen Group PLC/ Clinigen Healthcare Ltd-DE-CLGN-20-00222

PATIENT
  Age: 66 Year
  Sex: Female
  Weight: 79 kg

DRUGS (3)
  1. CYCLOPHOSPHAMIDE [Suspect]
     Active Substance: CYCLOPHOSPHAMIDE
     Indication: Metastatic malignant melanoma
     Dosage: 60 MG/KG, QD
     Route: 042
     Dates: start: 20190902, end: 20190903
  2. FLUDARABINE [Suspect]
     Active Substance: FLUDARABINE PHOSPHATE
     Indication: Metastatic malignant melanoma
     Dosage: 25 MG/M2, QD
     Route: 042
     Dates: start: 20190904, end: 20190908
  3. PROLEUKIN [Suspect]
     Active Substance: ALDESLEUKIN
     Indication: Metastatic malignant melanoma
     Dosage: 36 10*6.IU, QD
     Route: 042
     Dates: start: 20190910, end: 20190912

REACTIONS (1)
  - Upper gastrointestinal haemorrhage [Recovered/Resolved]

NARRATIVE: CASE EVENT DATE: 20190911
